FAERS Safety Report 9753748 (Version 2)
Quarter: 2015Q3

REPORT INFORMATION
  Report Type: Spontaneous
  Country: US (occurrence: US)
  Receive Date: 20131213
  Receipt Date: 20150805
  Transmission Date: 20151125
  Serious: No
  Sender: FDA-Public Use
  Company Number: US-GILEAD-2010-0026577

PATIENT
  Age: 69 Year
  Sex: Male

DRUGS (10)
  1. GABAPENTIN. [Concomitant]
     Active Substance: GABAPENTIN
  2. ZOCOR [Concomitant]
     Active Substance: SIMVASTATIN
  3. CLARITIN [Concomitant]
     Active Substance: LORATADINE
  4. COREG [Concomitant]
     Active Substance: CARVEDILOL
  5. POTASSIUM [Concomitant]
     Active Substance: POTASSIUM
  6. WARFARIN [Concomitant]
     Active Substance: WARFARIN
  7. SPIRONOLACTONE. [Concomitant]
     Active Substance: SPIRONOLACTONE
  8. LETAIRIS [Suspect]
     Active Substance: AMBRISENTAN
     Indication: PULMONARY ARTERIAL HYPERTENSION
  9. DIGOXIN. [Concomitant]
     Active Substance: DIGOXIN
  10. FUROSEMIDE. [Concomitant]
     Active Substance: FUROSEMIDE

REACTIONS (1)
  - Muscle spasms [Not Recovered/Not Resolved]

NARRATIVE: CASE EVENT DATE: 200911
